FAERS Safety Report 11059194 (Version 1)
Quarter: 2015Q2

REPORT INFORMATION
  Report Type: Spontaneous
  Country: US (occurrence: None)
  Receive Date: 20150422
  Receipt Date: 20150422
  Transmission Date: 20150821
  Serious: No
  Sender: FDA-Public Use
  Company Number: None

PATIENT
  Age: 66 Year
  Sex: Female

DRUGS (1)
  1. INDOMETHACIN. [Suspect]
     Active Substance: INDOMETHACIN

REACTIONS (5)
  - Rectal cancer [None]
  - Anaemia [None]
  - Faeces discoloured [None]
  - Duodenitis [None]
  - Gastritis [None]

NARRATIVE: CASE EVENT DATE: 20150416
